FAERS Safety Report 9815399 (Version 3)
Quarter: 2014Q1

REPORT INFORMATION
  Report Type: Spontaneous
  Country: BE (occurrence: BE)
  Receive Date: 20140114
  Receipt Date: 20140306
  Transmission Date: 20141002
  Serious: Yes (Death)
  Sender: FDA-Public Use
  Company Number: BE-CELGENEUS-013-21880-14010416

PATIENT
  Age: 72 Year
  Sex: Male

DRUGS (5)
  1. REVLIMID [Suspect]
     Indication: PLASMA CELL MYELOMA
     Dosage: 25 MILLIGRAM
     Route: 048
     Dates: start: 20120516, end: 20131127
  2. CYCLOPHOSPHAMIDE [Concomitant]
     Indication: PLASMA CELL MYELOMA
     Route: 065
     Dates: start: 2008
  3. CYCLOPHOSPHAMIDE [Concomitant]
     Dosage: 50 MILLIGRAM
     Route: 048
     Dates: start: 20130102, end: 20130521
  4. DEXAMETHASONE [Concomitant]
     Indication: PLASMA CELL MYELOMA
     Route: 065
     Dates: start: 2008
  5. DEXAMETHASONE [Concomitant]
     Route: 065
     Dates: start: 201205

REACTIONS (1)
  - Small cell lung cancer metastatic [Fatal]
